FAERS Safety Report 9554963 (Version 1)
Quarter: 2013Q3

REPORT INFORMATION
  Report Type: Report from Study
  Country: ES (occurrence: ES)
  Receive Date: 20130926
  Receipt Date: 20130926
  Transmission Date: 20140515
  Serious: Yes (Other)
  Sender: FDA-Public Use
  Company Number: ES-ROCHE-1280917

PATIENT
  Age: 79 Year
  Sex: Male

DRUGS (1)
  1. RANIBIZUMAB [Suspect]
     Indication: AGE-RELATED MACULAR DEGENERATION
     Route: 050
     Dates: start: 2013

REACTIONS (1)
  - Retinal haemorrhage [Not Recovered/Not Resolved]
